FAERS Safety Report 6877356-3 (Version None)
Quarter: 2010Q3

REPORT INFORMATION
  Report Type: 
  Country: None (occurrence: None)
  Receive Date: 20100727
  Receipt Date: 20090928
  Transmission Date: 20110219
  Serious: No
  Sender: FDA-Public Use
  Company Number: US-ABBOTT-09P-163-0600103-00

PATIENT
  Sex: Female
  Weight: 67.192 kg

DRUGS (7)
  1. SYNTHROID [Suspect]
     Indication: HYPOTHYROIDISM
     Dates: start: 19800101
  2. SYNTHROID [Suspect]
     Dates: start: 20090101
  3. SYNTHROID [Suspect]
  4. OMEPRAZOLE [Concomitant]
     Indication: GASTROOESOPHAGEAL REFLUX DISEASE
  5. MULTIPLE VITAMINS [Concomitant]
     Indication: VITAMIN SUPPLEMENTATION
  6. VITAMIN D [Concomitant]
     Indication: VITAMIN SUPPLEMENTATION
  7. FISH OIL [Concomitant]
     Indication: ROUTINE HEALTH MAINTENANCE

REACTIONS (7)
  - ABDOMINAL PAIN UPPER [None]
  - ASTHENIA [None]
  - BLINDNESS [None]
  - HEADACHE [None]
  - NAUSEA [None]
  - VITREOUS DETACHMENT [None]
  - VITREOUS FLOATERS [None]
